FAERS Safety Report 5516057-0 (Version None)
Quarter: 2007Q4

REPORT INFORMATION
  Report Type: 
  Country: None (occurrence: None)
  Receive Date: 20071114
  Receipt Date: 20061128
  Transmission Date: 20080405
  Serious: No
  Sender: FDA-Public Use
  Company Number: A0628659A

PATIENT
  Age: 59 Year
  Sex: Male

DRUGS (3)
  1. COMMIT [Suspect]
     Dates: start: 20061126, end: 20061126
  2. BLOOD PRESSURE MEDICATION [Concomitant]
  3. POTASSIUM CHLORIDE [Concomitant]

REACTIONS (1)
  - DYSPNOEA [None]
